FAERS Safety Report 5819564-6 (Version None)
Quarter: 2008Q3

REPORT INFORMATION
  Report Type: 
  Country: None (occurrence: None)
  Receive Date: 20080723
  Receipt Date: 20080718
  Transmission Date: 20090109
  Serious: Yes (Other)
  Sender: FDA-Public Use
  Company Number: IT-ABBOTT-08P-083-0462185-00

PATIENT
  Sex: Male

DRUGS (1)
  1. DEPAKOTE [Suspect]
     Indication: FEBRILE CONVULSION
     Route: 048
     Dates: start: 20080401, end: 20080703

REACTIONS (2)
  - ANAEMIA [None]
  - APLASIA PURE RED CELL [None]
